FAERS Safety Report 15208967 (Version 1)
Quarter: 2018Q3

REPORT INFORMATION
  Report Type: Spontaneous
  Country: US (occurrence: US)
  Receive Date: 20180727
  Receipt Date: 20180727
  Transmission Date: 20181010
  Serious: Yes (Other)
  Sender: FDA-Public Use
  Company Number: US-GLENMARK PHARMACEUTICALS-2018GMK036748

PATIENT
  Age: 84 Year
  Sex: Male

DRUGS (2)
  1. FLECAINIDE [Concomitant]
     Active Substance: FLECAINIDE
     Indication: ATRIAL FIBRILLATION
     Dosage: UNK (TAKEN FOR SEVERAL YEARS)
     Route: 065
  2. NAPROXEN. [Suspect]
     Active Substance: NAPROXEN
     Indication: LUMBAR SPINAL STENOSIS
     Dosage: 220 MG, TID
     Route: 065

REACTIONS (2)
  - Eosinophilic pneumonia [Recovering/Resolving]
  - Interstitial lung disease [Recovering/Resolving]
